FAERS Safety Report 24031000 (Version 1)
Quarter: 2024Q2

REPORT INFORMATION
  Report Type: Spontaneous
  Country: IT (occurrence: IT)
  Receive Date: 20240628
  Receipt Date: 20240628
  Transmission Date: 20240715
  Serious: Yes (Other)
  Sender: FDA-Public Use
  Company Number: None

PATIENT
  Age: 71 Year
  Sex: Male
  Weight: 65 kg

DRUGS (9)
  1. LEVOLEUCOVORIN CALCIUM [Suspect]
     Active Substance: LEVOLEUCOVORIN CALCIUM
     Indication: Adenocarcinoma gastric
     Dosage: 338 MILLIGRAM, QOW
     Route: 042
     Dates: start: 20220301, end: 20220301
  2. DOCETAXEL [Suspect]
     Active Substance: DOCETAXEL\DOCETAXEL ANHYDROUS
     Indication: Adenocarcinoma gastric
     Dosage: 84.5 MILLIGRAM, QOW
     Route: 042
     Dates: start: 20220301, end: 20220301
  3. FLUOROURACIL [Suspect]
     Active Substance: FLUOROURACIL
     Indication: Adenocarcinoma gastric
     Dosage: 4394 MILLIGRAM, QOW
     Route: 042
     Dates: start: 20220301, end: 20220301
  4. OXALIPLATIN [Suspect]
     Active Substance: OXALIPLATIN
     Indication: Adenocarcinoma gastric
     Dosage: 143.65 MILLIGRAM, QOW
     Route: 042
     Dates: start: 20220301, end: 20220301
  5. ESOMEPRAZOLE MAGNESIUM [Concomitant]
     Active Substance: ESOMEPRAZOLE MAGNESIUM
     Indication: Product used for unknown indication
     Dosage: UNKNOWN
     Route: 065
  6. LEVOTHYROXINE SODIUM [Concomitant]
     Active Substance: LEVOTHYROXINE SODIUM
     Indication: Product used for unknown indication
     Dosage: UNKNOWN
     Route: 065
  7. OLMESARTAN MEDOXOMIL [Concomitant]
     Active Substance: OLMESARTAN MEDOXOMIL
     Indication: Product used for unknown indication
     Dosage: UNKNOWN
     Route: 065
  8. PERIDON [DOMPERIDONE] [Concomitant]
     Indication: Product used for unknown indication
     Dosage: UNKNOWN
     Route: 065
  9. MAGALDRATE [Concomitant]
     Active Substance: MAGALDRATE
     Indication: Product used for unknown indication
     Dosage: UNKNOWN
     Route: 065

REACTIONS (5)
  - Oral dysaesthesia [Recovered/Resolved]
  - Dysphonia [Recovered/Resolved]
  - Neutropenia [Recovered/Resolved]
  - Dysgeusia [Recovered/Resolved]
  - Alopecia [Recovering/Resolving]

NARRATIVE: CASE EVENT DATE: 20220302
